FAERS Safety Report 6438837-X (Version None)
Quarter: 2009Q4

REPORT INFORMATION
  Report Type: 
  Country: None (occurrence: None)
  Receive Date: 20091113
  Receipt Date: 20091105
  Transmission Date: 20100525
  Serious: Yes (Other)
  Sender: FDA-Public Use
  Company Number: AT-JNJFOC-20091101542

PATIENT
  Age: 63 Year
  Sex: Male

DRUGS (4)
  1. DURAGESIC-100 [Suspect]
     Indication: DRUG USE FOR UNKNOWN INDICATION
     Route: 062
  2. THALIDONE [Concomitant]
     Route: 065
  3. CORTISONE [Concomitant]
     Route: 065
  4. UNKNOWN MEDICATION [Concomitant]
     Indication: GASTROINTESTINAL DISORDER THERAPY
     Route: 065

REACTIONS (4)
  - DRUG INEFFECTIVE [None]
  - FATIGUE [None]
  - MENTAL STATUS CHANGES [None]
  - WRONG TECHNIQUE IN DRUG USAGE PROCESS [None]
